FAERS Safety Report 5367392-0 (Version None)
Quarter: 2007Q2

REPORT INFORMATION
  Report Type: 
  Country: None (occurrence: None)
  Receive Date: 20070622
  Receipt Date: 20061106
  Transmission Date: 20071010
  Serious: No
  Sender: FDA-Public Use
  Company Number: US-ASTRAZENECA-2006UW21712

PATIENT
  Age: 68 Year
  Sex: Female

DRUGS (2)
  1. PULMICORT RESPULES [Suspect]
     Route: 055
     Dates: start: 20061103
  2. SEVERAL MEDICATIONS [Concomitant]

REACTIONS (2)
  - ERYTHEMA [None]
  - MEDICATION ERROR [None]
